FAERS Safety Report 13156437 (Version 2)
Quarter: 2017Q1

REPORT INFORMATION
  Report Type: Spontaneous
  Country: VE (occurrence: VE)
  Receive Date: 20170126
  Receipt Date: 20170213
  Transmission Date: 20170428
  Serious: Yes (Hospitalization)
  Sender: FDA-Public Use
  Company Number: VE-BIOGEN-2017BI00347476

PATIENT
  Age: 52 Year
  Sex: Female
  Weight: 87 kg

DRUGS (1)
  1. TYSABRI [Suspect]
     Active Substance: NATALIZUMAB
     Indication: RELAPSING-REMITTING MULTIPLE SCLEROSIS
     Route: 042
     Dates: start: 20121212, end: 201612

REACTIONS (7)
  - Altered state of consciousness [Not Recovered/Not Resolved]
  - Muscle disorder [Not Recovered/Not Resolved]
  - Somnolence [Unknown]
  - Muscular weakness [Unknown]
  - Hemiparesis [Not Recovered/Not Resolved]
  - Disorientation [Unknown]
  - Prescription drug used without a prescription [Unknown]

NARRATIVE: CASE EVENT DATE: 201612
